FAERS Safety Report 12199427 (Version 13)
Quarter: 2017Q1

REPORT INFORMATION
  Report Type: Report from Study
  Country: US (occurrence: US)
  Receive Date: 20160322
  Receipt Date: 20170330
  Transmission Date: 20170428
  Serious: Yes (Hospitalization, Other)
  Sender: FDA-Public Use
  Company Number: US-BAYER-2016-051150

PATIENT
  Age: 70 Year
  Sex: Female
  Weight: 55.33 kg

DRUGS (9)
  1. ADEMPAS [Suspect]
     Active Substance: RIOCIGUAT
     Indication: PULMONARY HYPERTENSION
     Dosage: 1.5 MG, TID
     Route: 048
  2. COUMADIN [Concomitant]
     Active Substance: WARFARIN SODIUM
     Dosage: UNK
  3. ADEMPAS [Suspect]
     Active Substance: RIOCIGUAT
     Indication: PULMONARY HYPERTENSION
     Dosage: 1.5 MG, TID
     Route: 048
  4. ADEMPAS [Suspect]
     Active Substance: RIOCIGUAT
     Indication: PULMONARY HYPERTENSION
     Dosage: 1.5 MG, TID
     Route: 048
  5. VELETRI [Suspect]
     Active Substance: EPOPROSTENOL
     Dosage: UNK
  6. WARFARIN [Concomitant]
     Active Substance: WARFARIN
     Dosage: UNK
  7. ADEMPAS [Suspect]
     Active Substance: RIOCIGUAT
     Indication: PULMONARY HYPERTENSION
     Dosage: UNK
     Route: 048
     Dates: start: 20150717
  8. ADEMPAS [Suspect]
     Active Substance: RIOCIGUAT
     Indication: PULMONARY HYPERTENSION
     Dosage: 1.5 MG, TID
     Route: 048
  9. ADEMPAS [Suspect]
     Active Substance: RIOCIGUAT
     Indication: PULMONARY HYPERTENSION
     Dosage: 1.5 MG, TID
     Route: 048

REACTIONS (18)
  - Gastric infection [Unknown]
  - Rash [Unknown]
  - Oxygen saturation decreased [Unknown]
  - Blood iron decreased [None]
  - Pain of skin [Unknown]
  - Application site pruritus [Unknown]
  - Catheter site swelling [Unknown]
  - Heart rate increased [Unknown]
  - Anaemia [Unknown]
  - Catheter site erythema [Unknown]
  - Supraventricular tachycardia [Recovered/Resolved]
  - Anaemia [Recovering/Resolving]
  - Pruritus generalised [Unknown]
  - Anaemia [None]
  - Muscle tightness [Unknown]
  - Medical procedure [Unknown]
  - Pulmonary artery therapeutic procedure [Unknown]
  - Rash macular [None]

NARRATIVE: CASE EVENT DATE: 201606
